FAERS Safety Report 10911791 (Version 1)
Quarter: 2015Q1

REPORT INFORMATION
  Report Type: Spontaneous
  Country: US (occurrence: None)
  Receive Date: 20150309
  Receipt Date: 20150309
  Transmission Date: 20150721
  Serious: No
  Sender: FDA-Public Use
  Company Number: SOM-2927-AE

PATIENT
  Age: 51 Year
  Sex: Female
  Weight: 85.73 kg

DRUGS (2)
  1. CYTRA-2 [Suspect]
     Active Substance: CITRIC ACID MONOHYDRATE\TRISODIUM CITRATE DIHYDRATE
     Indication: URINARY TRACT DISORDER
     Route: 048
     Dates: start: 201409, end: 20150214
  2. TRILETAL [Concomitant]

REACTIONS (5)
  - Muscle spasms [None]
  - Nausea [None]
  - Diarrhoea [None]
  - Eructation [None]
  - Malaise [None]

NARRATIVE: CASE EVENT DATE: 20150224
